FAERS Safety Report 8391517-6 (Version None)
Quarter: 2012Q1

REPORT INFORMATION
  Report Type: 
  Country: None (occurrence: None)
  Receive Date: 20120323
  Receipt Date: 20110418
  Transmission Date: 20120608
  Serious: Yes (Hospitalization)
  Sender: FDA-Public Use
  Company Number: 163-21880-11033357

PATIENT
  Age: 78 Year
  Sex: Female

DRUGS (3)
  1. REVLIMID [Suspect]
     Indication: MULTIPLE MYELOMA
     Dosage: 25 MG, PO, 5MG-15MG, PO, 5 MG, DAYS 1-21, PO
     Route: 048
     Dates: start: 20071101
  2. REVLIMID [Suspect]
     Indication: MULTIPLE MYELOMA
     Dosage: 25 MG, PO, 5MG-15MG, PO, 5 MG, DAYS 1-21, PO
     Route: 048
     Dates: start: 20100601
  3. REVLIMID [Suspect]
     Indication: MULTIPLE MYELOMA
     Dosage: 25 MG, PO, 5MG-15MG, PO, 5 MG, DAYS 1-21, PO
     Route: 048
     Dates: start: 20060601

REACTIONS (2)
  - SPINAL OSTEOARTHRITIS [None]
  - MUSCLE SPASMS [None]
